FAERS Safety Report 7261794-3 (Version None)
Quarter: 2011Q1

REPORT INFORMATION
  Report Type: 
  Country: None (occurrence: None)
  Receive Date: 20110120
  Receipt Date: 20110107
  Transmission Date: 20110831
  Serious: Yes (Death)
  Sender: FDA-Public Use
  Company Number: ACO_21369_2010

PATIENT
  Age: 68 Year
  Sex: Male

DRUGS (2)
  1. AMPYRA [Suspect]
     Indication: MULTIPLE SCLEROSIS
     Dosage: 10 MG, BID, ORAL
     Route: 048
     Dates: start: 20100330, end: 20100101
  2. AMPYRA [Suspect]
     Indication: MOVEMENT DISORDER
     Dosage: 10 MG, BID, ORAL
     Route: 048
     Dates: start: 20100330, end: 20100101

REACTIONS (2)
  - OFF LABEL USE [None]
  - PNEUMONIA [None]
